FAERS Safety Report 4489274-9 (Version None)
Quarter: 2004Q4

REPORT INFORMATION
  Report Type: 
  Country: None (occurrence: None)
  Receive Date: 20041029
  Receipt Date: 20040913
  Transmission Date: 20050328
  Serious: Yes (Hospitalization)
  Sender: FDA-Public Use
  Company Number: ES-AMGEN-UK091143

PATIENT
  Sex: Female
  Weight: 74 kg

DRUGS (8)
  1. NEUPOGEN [Suspect]
     Indication: CHEMOTHERAPY
     Route: 058
     Dates: start: 20040901, end: 20040911
  2. CYCLOPHOSPHAMIDE [Concomitant]
     Route: 042
     Dates: start: 20040901, end: 20040901
  3. ADRIAMYCIN PFS [Concomitant]
     Route: 042
     Dates: start: 20040901, end: 20040901
  4. DOCETAXEL [Concomitant]
     Route: 042
     Dates: start: 20040901, end: 20040901
  5. DEXAMETHASONE [Concomitant]
     Route: 042
     Dates: start: 20040901, end: 20040901
  6. ONDANSETRON [Concomitant]
     Route: 042
     Dates: start: 20040901, end: 20040901
  7. RANITIDINE [Concomitant]
     Route: 042
     Dates: start: 20040901, end: 20040901
  8. IRON [Concomitant]
     Route: 048
     Dates: start: 20040901

REACTIONS (3)
  - ARTHRALGIA [None]
  - FEBRILE NEUTROPENIA [None]
  - MYALGIA [None]
